FAERS Safety Report 17430265 (Version 2)
Quarter: 2020Q1

REPORT INFORMATION
  Report Type: Spontaneous
  Country: US (occurrence: US)
  Receive Date: 20200218
  Receipt Date: 20200304
  Transmission Date: 20200409
  Serious: Yes (Hospitalization, Other)
  Sender: FDA-Public Use
  Company Number: US-PFIZER INC-2020070696

PATIENT
  Age: 70 Year
  Sex: Female
  Weight: 61.23 kg

DRUGS (1)
  1. SUTENT [Suspect]
     Active Substance: SUNITINIB MALATE
     Indication: RENAL CELL CARCINOMA
     Dosage: UNK, ONCE A DAY
     Dates: start: 201801

REACTIONS (5)
  - Dehydration [Unknown]
  - Eating disorder [Unknown]
  - White blood cell count decreased [Unknown]
  - Renal failure [Recovered/Resolved]
  - Vomiting [Unknown]

NARRATIVE: CASE EVENT DATE: 201801
